FAERS Safety Report 22014691 (Version 2)
Quarter: 2023Q1

REPORT INFORMATION
  Report Type: Spontaneous
  Country: CN (occurrence: None)
  Receive Date: 20230221
  Receipt Date: 20230221
  Transmission Date: 20230417
  Serious: Yes (Other)
  Sender: FDA-Public Use
  Company Number: CN-ROCHE-3284665

PATIENT
  Age: 60 Year
  Sex: Female

DRUGS (8)
  1. HERCEPTIN [Suspect]
     Active Substance: TRASTUZUMAB
     Indication: Invasive breast carcinoma
     Route: 065
     Dates: start: 2021
  2. PERJETA [Suspect]
     Active Substance: PERTUZUMAB
     Indication: Invasive breast carcinoma
     Route: 065
     Dates: start: 2021
  3. DOCETAXEL [Concomitant]
     Active Substance: DOCETAXEL
     Indication: Invasive breast carcinoma
     Dates: start: 2021
  4. CARBOPLATIN [Concomitant]
     Active Substance: CARBOPLATIN
     Indication: Invasive breast carcinoma
     Dates: start: 2021
  5. ZOLEDRONIC ACID [Concomitant]
     Active Substance: ZOLEDRONIC ACID
     Indication: Invasive breast carcinoma
     Route: 065
     Dates: start: 2021
  6. ZOLEDRONIC ACID [Concomitant]
     Active Substance: ZOLEDRONIC ACID
     Route: 041
     Dates: start: 202111
  7. ANASTROZOLE [Concomitant]
     Active Substance: ANASTROZOLE
     Indication: Invasive breast carcinoma
     Route: 048
     Dates: start: 20211022
  8. FULVESTRANT [Concomitant]
     Active Substance: FULVESTRANT
     Indication: Invasive breast carcinoma
     Dosage: DAY 1, DAY 15, DAY 28, AND THEN ONCE EVERY 28 DAYS
     Route: 030
     Dates: start: 202111

REACTIONS (5)
  - Diarrhoea [Recovering/Resolving]
  - Bone pain [Recovering/Resolving]
  - Myelosuppression [Recovering/Resolving]
  - Hypoaesthesia [Unknown]
  - Hypoaesthesia [Unknown]
